FAERS Safety Report 4301259-1 (Version None)
Quarter: 2004Q1

REPORT INFORMATION
  Report Type: 
  Country: None (occurrence: None)
  Receive Date: 20040219
  Receipt Date: 20040209
  Transmission Date: 20041129
  Serious: No
  Sender: FDA-Public Use
  Company Number: 2004GB00349

PATIENT
  Age: 60 Year
  Sex: Female
  Weight: 69 kg

DRUGS (2)
  1. FELODIPINE [Suspect]
     Indication: HYPERTENSION
     Dosage: 5 MG QD PO
     Route: 048
     Dates: start: 20040113, end: 20040121
  2. BENDROFLUAZIDE [Concomitant]

REACTIONS (3)
  - EYE PRURITUS [None]
  - GENITAL PRURITUS FEMALE [None]
  - PARAESTHESIA MUCOSAL [None]
